FAERS Safety Report 8424066-7 (Version None)
Quarter: 2012Q2

REPORT INFORMATION
  Report Type: 
  Country: None (occurrence: None)
  Receive Date: 20120608
  Receipt Date: 20120530
  Transmission Date: 20120825
  Serious: Yes (Other)
  Sender: FDA-Public Use
  Company Number: US-ALLERGAN-1207613US

PATIENT
  Age: 80 Year
  Sex: Female

DRUGS (1)
  1. RESTASIS [Suspect]
     Indication: DRY EYE
     Dosage: 2 TIMES DAILY
     Route: 047
     Dates: start: 20120201

REACTIONS (5)
  - DIZZINESS [None]
  - ABDOMINAL DISCOMFORT [None]
  - NAUSEA [None]
  - HEADACHE [None]
  - PEMPHIGOID [None]
